FAERS Safety Report 6867603-6 (Version None)
Quarter: 2010Q3

REPORT INFORMATION
  Report Type: 
  Country: None (occurrence: None)
  Receive Date: 20100722
  Receipt Date: 20090716
  Transmission Date: 20110219
  Serious: No
  Sender: FDA-Public Use
  Company Number: US-BAUSCH-2009BL003569

PATIENT
  Age: 37 Year
  Sex: Female

DRUGS (1)
  1. OPCON-A [Suspect]
     Indication: SEASONAL ALLERGY
     Route: 047
     Dates: start: 20090716, end: 20090716

REACTIONS (1)
  - MYDRIASIS [None]
